FAERS Safety Report 9702540 (Version 2)
Quarter: 2013Q4

REPORT INFORMATION
  Report Type: Report from Study
  Country: JP (occurrence: JP)
  Receive Date: 20131121
  Receipt Date: 20131121
  Transmission Date: 20140711
  Serious: Yes (Hospitalization)
  Sender: FDA-Public Use
  Company Number: JP-TAKEDA-2013TJP001428

PATIENT
  Age: 63 Year
  Sex: Female
  Weight: 62 kg

DRUGS (17)
  1. LANSOPRAZOLE [Suspect]
     Indication: PROPHYLAXIS AGAINST GASTROINTESTINAL ULCER
     Dosage: 15 MG, QD
     Route: 048
     Dates: start: 20120827
  2. BAYASPIRIN [Concomitant]
     Indication: THROMBOSIS PROPHYLAXIS
     Dosage: 100 MG, 1 DAYS
     Route: 048
  3. LIPITOR [Concomitant]
     Dosage: 20 MG, 1 DAYS
     Route: 048
  4. CONIEL [Concomitant]
     Indication: ANGINA PECTORIS
     Dosage: 4 MG,1 DAYS
     Route: 048
     Dates: end: 20120924
  5. CONIEL [Concomitant]
     Dosage: 2 MG, 1 DAYS
     Route: 048
     Dates: start: 20130517
  6. FRANDOL [Concomitant]
     Indication: ANGINA PECTORIS
     Dosage: 40 MG, 1 DAYS
     Route: 062
     Dates: end: 20120924
  7. FRANDOL [Concomitant]
     Dosage: 40 MG, 1 DAYS
     Route: 062
     Dates: start: 20130517
  8. ALLOZYM [Concomitant]
     Dosage: 100 MG, 1 DAYS
     Route: 048
  9. NITROPEN [Concomitant]
     Indication: ANGINA PECTORIS
     Dosage: 0.3 MG, PRN
     Route: 048
  10. MYOCOR [Concomitant]
     Indication: ANGINA PECTORIS
     Dosage: 1 GTT, PRN
     Route: 060
  11. PURSENNID                          /00571902/ [Concomitant]
     Dosage: 12 MG, PRN
     Route: 048
  12. MAGLAX [Concomitant]
     Dosage: 750 MG, 1 DAYS
     Route: 048
  13. HERBESSER R [Concomitant]
     Indication: ANGINA PECTORIS
     Dosage: 100 MG, 1 DAYS
     Route: 048
     Dates: start: 20120925, end: 20130516
  14. FRANDOL [Suspect]
     Indication: ANGINA PECTORIS
     Dosage: 40 MG, 1 DAYS
     Route: 048
     Dates: start: 20120925
  15. DIART [Concomitant]
     Indication: ANGINA PECTORIS
     Dosage: 15 MG, 1 DAYS
     Route: 048
     Dates: start: 20130423
  16. SINLESTAL [Concomitant]
     Indication: DYSLIPIDAEMIA
     Dosage: 500 MG, 1 DAYS
     Route: 048
     Dates: start: 20130423
  17. ZETIA [Concomitant]
     Indication: DYSLIPIDAEMIA
     Dosage: 10 MG, 1 DAYS
     Route: 048
     Dates: start: 20130618

REACTIONS (2)
  - Large intestine polyp [Recovering/Resolving]
  - Colitis ischaemic [Recovering/Resolving]
